FAERS Safety Report 10111170 (Version 1)
Quarter: 2014Q2

REPORT INFORMATION
  Report Type: Spontaneous
  Country: GB (occurrence: GB)
  Receive Date: 20140425
  Receipt Date: 20140425
  Transmission Date: 20141212
  Serious: Yes (Congenital Anomaly)
  Sender: FDA-Public Use
  Company Number: 2014SP002205

PATIENT
  Sex: Male

DRUGS (9)
  1. METHOTREXATE [Suspect]
     Indication: PRODUCT USED FOR UNKNOWN INDICATION
  2. CALCIUM LACTATE [Concomitant]
  3. CALCIUM PHOSPHATE [Concomitant]
  4. ERGOCALCIFEROL [Concomitant]
  5. VITAMIN D NOS [Concomitant]
  6. METFORMIN HYDROCHLORIDE [Concomitant]
  7. OMEPRAZOLE [Concomitant]
  8. RAMIPRIL [Concomitant]
  9. RITUXIMAB [Concomitant]

REACTIONS (3)
  - Premature baby [Unknown]
  - Heart disease congenital [Not Recovered/Not Resolved]
  - Exposure via father [Unknown]
